FAERS Safety Report 11444931 (Version 1)
Quarter: 2015Q3

REPORT INFORMATION
  Report Type: Report from Study
  Country: US (occurrence: US)
  Receive Date: 20150902
  Receipt Date: 20150902
  Transmission Date: 20151125
  Serious: Yes (Other)
  Sender: FDA-Public Use
  Company Number: US-BRISTOL-MYERS SQUIBB COMPANY-14609341

PATIENT
  Age: 31 Year
  Sex: Female
  Weight: 59.41 kg

DRUGS (1)
  1. IPILIMUMAB [Suspect]
     Active Substance: IPILIMUMAB
     Indication: MALIGNANT MELANOMA
     Dosage: BLINDED STUDY THERAPY ADMINISTERED ON 11-FEB-2009 (4TH COURSE)
     Route: 042
     Dates: start: 20081210

REACTIONS (3)
  - Hypothyroidism [Recovered/Resolved with Sequelae]
  - Hypophysitis [Recovered/Resolved with Sequelae]
  - Eosinophilic pneumonia [Recovered/Resolved]

NARRATIVE: CASE EVENT DATE: 20090304
